FAERS Safety Report 7520728-4 (Version None)
Quarter: 2011Q2

REPORT INFORMATION
  Report Type: 
  Country: None (occurrence: None)
  Receive Date: 20110603
  Receipt Date: 20101213
  Transmission Date: 20111010
  Serious: Yes (Other)
  Sender: FDA-Public Use
  Company Number: JP-BAYER-200911464BYL

PATIENT
  Age: 68 Year
  Sex: Male
  Weight: 46.2 kg

DRUGS (22)
  1. OXYCONTIN [Concomitant]
     Dosage: 60 MG (DAILY DOSE), , ORAL
     Route: 048
     Dates: start: 20090515, end: 20090813
  2. AMARYL [Concomitant]
     Dosage: 1 MG (DAILY DOSE), , ORAL
     Route: 048
     Dates: start: 20090406, end: 20090827
  3. OXYCONTIN [Concomitant]
     Dosage: 45 MG (DAILY DOSE), , ORAL
     Route: 048
     Dates: start: 20090406, end: 20090514
  4. MAGNESIUM SULFATE [Concomitant]
     Indication: PROPHYLAXIS
     Dosage: 1500 MG (DAILY DOSE), , ORAL
     Route: 048
     Dates: start: 20090406, end: 20090410
  5. GLYCYRON [Concomitant]
     Dosage: 3 DF (DAILY DOSE), , ORAL
     Route: 048
     Dates: start: 20090406
  6. NEXAVAR [Suspect]
     Indication: RENAL CELL CARCINOMA
     Dosage: 800 MG (DAILY DOSE), BID, ORAL
     Route: 048
     Dates: start: 20090406, end: 20090508
  7. PROCHLORPERAZINE [Concomitant]
     Dosage: 15 MG (DAILY DOSE), , ORAL
     Route: 048
     Dates: start: 20090406
  8. SIGMART [Concomitant]
     Dosage: 10 MG (DAILY DOSE), , ORAL
     Route: 048
     Dates: start: 20090406
  9. NEXAVAR [Suspect]
     Dosage: 800 MG (DAILY DOSE), , ORAL
     Route: 048
     Dates: start: 20090522
  10. OXYCONTIN [Concomitant]
     Dosage: 15 MG (DAILY DOSE), , ORAL
     Route: 048
     Dates: start: 20090911, end: 20091015
  11. ASPIRIN [Concomitant]
     Dosage: 100 MG (DAILY DOSE), , ORAL
     Route: 048
     Dates: start: 20090406
  12. SILECE [Concomitant]
     Dosage: 1 MG (DAILY DOSE), , ORAL
     Route: 048
     Dates: start: 20090828
  13. CANDESARTAN CILEXETIL [Concomitant]
     Dosage: 8 MG (DAILY DOSE), , ORAL
     Route: 048
     Dates: start: 20090406, end: 20090702
  14. BASEN [Concomitant]
     Dosage: 0.9 MG (DAILY DOSE), , ORAL
     Route: 048
     Dates: start: 20090406, end: 20090702
  15. ZOLPIDEM [Concomitant]
     Dosage: 5 MG (DAILY DOSE), , ORAL
     Route: 048
     Dates: start: 20090406, end: 20090515
  16. OXYCONTIN [Concomitant]
     Dosage: 30 MG (DAILY DOSE), , ORAL
     Route: 048
     Dates: start: 20090828, end: 20090910
  17. VESICARE [Concomitant]
     Indication: PROPHYLAXIS
     Dosage: 5 MG (DAILY DOSE), , ORAL
     Route: 048
     Dates: start: 20100114
  18. MUCOSTA [Concomitant]
     Dosage: 300 MG (DAILY DOSE), , ORAL
     Route: 048
     Dates: start: 20090406
  19. AMLODIPINE [Concomitant]
     Dosage: 2.5 MG (DAILY DOSE), , ORAL
     Route: 048
     Dates: start: 20090406, end: 20090604
  20. OXYCONTIN [Concomitant]
     Dosage: 45 MG (DAILY DOSE), , ORAL
     Route: 048
     Dates: start: 20090814, end: 20090827
  21. LENDORMIN [Concomitant]
     Dosage: 0.25 MG (DAILY DOSE), , ORAL
     Route: 048
     Dates: start: 20090101, end: 20090827
  22. OXYCONTIN [Concomitant]
     Dosage: 30 MG (DAILY DOSE), , ORAL
     Route: 048
     Dates: start: 20091016

REACTIONS (1)
  - HEPATIC FUNCTION ABNORMAL [None]
